FAERS Safety Report 24787937 (Version 1)
Quarter: 2024Q4

REPORT INFORMATION
  Report Type: Spontaneous
  Country: NL (occurrence: NL)
  Receive Date: 20241230
  Receipt Date: 20241230
  Transmission Date: 20250115
  Serious: No
  Sender: ALKEM
  Company Number: NL-ALKEM LABORATORIES LIMITED-NL-ALKEM-2024-03036

PATIENT

DRUGS (5)
  1. TACROLIMUS [Interacting]
     Active Substance: TACROLIMUS
     Indication: Immunosuppressant drug therapy
     Dosage: UNK
     Route: 065
  2. TACROLIMUS [Interacting]
     Active Substance: TACROLIMUS
     Dosage: UNK (DOSE WAS INCREASED BY 60 PERCENT)
     Route: 065
  3. ELEXACAFTOR [Interacting]
     Active Substance: ELEXACAFTOR
     Indication: Cystic fibrosis
     Dosage: UNK
     Route: 065
  4. IVACAFTOR [Interacting]
     Active Substance: IVACAFTOR
     Indication: Cystic fibrosis
     Dosage: UNK
     Route: 065
  5. TEZACAFTOR [Interacting]
     Active Substance: TEZACAFTOR
     Indication: Cystic fibrosis
     Dosage: UNK
     Route: 065

REACTIONS (2)
  - Drug interaction [Unknown]
  - Drug level increased [Unknown]
